FAERS Safety Report 9734553 (Version 4)
Quarter: 2014Q2

REPORT INFORMATION
  Report Type: Report from Study
  Country: FR (occurrence: FR)
  Receive Date: 20131206
  Receipt Date: 20140527
  Transmission Date: 20141212
  Serious: Yes (Death, Hospitalization)
  Sender: FDA-Public Use
  Company Number: FR-IPSEN BIOPHARMACEUTICALS, INC.-2011-0181

PATIENT
  Age: 11 Year
  Sex: Female
  Weight: 28 kg

DRUGS (3)
  1. INCRELEX [Suspect]
     Indication: INSULIN-LIKE GROWTH FACTOR DECREASED
     Route: 058
     Dates: start: 20101130, end: 20110116
  2. INCRELEX [Suspect]
     Route: 058
     Dates: start: 20090528, end: 20101117
  3. THYROID HORMONE [Concomitant]
     Indication: PRODUCT USED FOR UNKNOWN INDICATION
     Dosage: NOT REPORTED
     Route: 065

REACTIONS (3)
  - Myelodysplastic syndrome [Fatal]
  - Arthralgia [Recovered/Resolved]
  - Arthralgia [Recovered/Resolved]
